FAERS Safety Report 8702191 (Version 2)
Quarter: 2012Q4

REPORT INFORMATION
  Report Type: 
  Country: US (occurrence: US)
  Receive Date: 20120803
  Receipt Date: 20120914
  Transmission Date: 20130627
  Serious: Yes (Other)
  Sender: FDA-Public Use
  Company Number: US-PFIZER INC-2012188204

PATIENT
  Age: 64 Year
  Sex: Male
  Weight: 80.73 kg

DRUGS (2)
  1. LISINOPRIL [Concomitant]
     Indication: HYPERTENSION
     Dosage: UNK
  2. ZOLOFT [Suspect]
     Indication: MEMORY IMPAIRMENT
     Dosage: 50 mg, 1x/day
     Route: 048
     Dates: start: 201207, end: 20120801

REACTIONS (4)
  - Burns third degree [Recovered/Resolved]
  - Gait disturbance [Recovered/Resolved]
  - Blood cholesterol increased [Unknown]
  - Off label use [Recovered/Resolved]
